FAERS Safety Report 10896074 (Version 2)
Quarter: 2015Q2

REPORT INFORMATION
  Report Type: Spontaneous
  Country: FR (occurrence: FR)
  Receive Date: 20150309
  Receipt Date: 20150605
  Transmission Date: 20150821
  Serious: Yes (Life-Threatening)
  Sender: FDA-Public Use
  Company Number: FR-UCBSA-2015006019

PATIENT
  Age: 0 Year
  Sex: Male
  Weight: 3.85 kg

DRUGS (3)
  1. KEPPRA [Suspect]
     Active Substance: LEVETIRACETAM
     Dosage: 2500 MG DAILY
     Route: 064
     Dates: end: 20140704
  2. KEPPRA [Suspect]
     Active Substance: LEVETIRACETAM
     Indication: EPILEPSY
     Dosage: 1000 MG IN THE MORNING AND 500 MG IN THE EVENING.
     Route: 064
     Dates: start: 20130930
  3. DEPAKINE [Concomitant]
     Active Substance: VALPROATE SODIUM
     Indication: EPILEPSY
     Dosage: 250 MG, IN THE EVENING
     Route: 064
     Dates: start: 20130930, end: 20140704

REACTIONS (2)
  - Heart rate abnormal [Recovered/Resolved]
  - Foetal exposure during pregnancy [Unknown]

NARRATIVE: CASE EVENT DATE: 20130930
